FAERS Safety Report 10422441 (Version 2)
Quarter: 2014Q3

REPORT INFORMATION
  Report Type: Report from Study
  Country: US (occurrence: US)
  Receive Date: 20140901
  Receipt Date: 20140902
  Transmission Date: 20150326
  Serious: Yes (Hospitalization, Other)
  Sender: FDA-Public Use
  Company Number: US-BRISTOL-MYERS SQUIBB COMPANY-21336177

PATIENT
  Age: 62 Year
  Sex: Female
  Weight: 94.8 kg

DRUGS (1)
  1. IPILIMUMAB [Suspect]
     Active Substance: IPILIMUMAB
     Indication: MALIGNANT MELANOMA
     Dosage: INDUCTION THERAPY:Q 3 WEEKSX4 DOSES?MAINTNCE:Q 12 WEEKS ON WEEKS 24,36,48+60?LAST:26FEB14?1045MG
     Route: 042
     Dates: start: 20121220

REACTIONS (5)
  - Vomiting [Recovered/Resolved]
  - Dehydration [Recovered/Resolved]
  - Renal failure acute [Unknown]
  - Hyponatraemia [Unknown]
  - Nausea [Recovered/Resolved]

NARRATIVE: CASE EVENT DATE: 20140709
